FAERS Safety Report 8008220-4 (Version None)
Quarter: 2011Q4

REPORT INFORMATION
  Report Type: 
  Country: None (occurrence: None)
  Receive Date: 20111227
  Receipt Date: 20111221
  Transmission Date: 20120403
  Serious: Yes (Life-Threatening)
  Sender: FDA-Public Use
  Company Number: FR-SANOFI-AVENTIS-2011SA083626

PATIENT
  Age: 34 Year
  Sex: Female

DRUGS (3)
  1. RIFADIN [Suspect]
     Route: 048
     Dates: start: 20080809
  2. RIMIFON [Concomitant]
     Route: 048
     Dates: start: 20080809
  3. PYRAZINAMIDE [Suspect]
     Route: 048
     Dates: start: 20080809

REACTIONS (1)
  - HEPATITIS FULMINANT [None]
